FAERS Safety Report 8511288-X (Version None)
Quarter: 2012Q3

REPORT INFORMATION
  Report Type: 
  Country: None (occurrence: None)
  Receive Date: 20120716
  Receipt Date: 20120705
  Transmission Date: 20120928
  Serious: Yes (Hospitalization)
  Sender: FDA-Public Use
  Company Number: FR-ELI_LILLY_AND_COMPANY-FR201204007062

PATIENT
  Age: 78 Year
  Sex: Female
  Weight: 66 kg

DRUGS (3)
  1. IRBESARTAN AND HYDROCHLOROTHIAZIDE [Concomitant]
     Indication: HYPERTENSION
  2. FORTEO [Suspect]
     Indication: OSTEOPOROSIS
     Dosage: 20 UG, QD
     Route: 058
     Dates: start: 20111001
  3. ESCITALOPRAM [Concomitant]

REACTIONS (4)
  - ATRIAL FIBRILLATION [None]
  - HEART RATE INCREASED [None]
  - BLOOD PRESSURE INCREASED [None]
  - HYPERTENSION [None]
